FAERS Safety Report 16273744 (Version 3)
Quarter: 2021Q1

REPORT INFORMATION
  Report Type: Spontaneous
  Country: US (occurrence: US)
  Receive Date: 20190506
  Receipt Date: 20210212
  Transmission Date: 20210419
  Serious: Yes (Hospitalization, Other)
  Sender: FDA-Public Use
  Company Number: US-ASTRAZENECA-2019SE58532

PATIENT
  Age: 22293 Day
  Sex: Male
  Weight: 91.6 kg

DRUGS (94)
  1. PRILOSEC [Suspect]
     Active Substance: OMEPRAZOLE MAGNESIUM
     Indication: GASTROOESOPHAGEAL REFLUX DISEASE
     Dosage: GENERIC
     Route: 065
     Dates: start: 201004, end: 201101
  2. PROMETHAZINE [Concomitant]
     Active Substance: PROMETHAZINE HYDROCHLORIDE
     Indication: NAUSEA
     Dates: start: 200809, end: 201409
  3. AZITHROMYCIN ANHYDROUS. [Concomitant]
     Active Substance: AZITHROMYCIN ANHYDROUS
  4. TUSSIONEX PENNKINETIC [Concomitant]
     Active Substance: CHLORPHENIRAMINE\HYDROCODONE
  5. METOPROLOL. [Concomitant]
     Active Substance: METOPROLOL
  6. MICARDIS [Concomitant]
     Active Substance: TELMISARTAN
  7. VIAGRA [Concomitant]
     Active Substance: SILDENAFIL CITRATE
  8. RANITIDINE. [Concomitant]
     Active Substance: RANITIDINE
  9. FEXOFENADINE [Concomitant]
     Active Substance: FEXOFENADINE HYDROCHLORIDE
  10. DEMADEX [Concomitant]
     Active Substance: TORSEMIDE
  11. MONOPRIL [Concomitant]
     Active Substance: FOSINOPRIL SODIUM
     Indication: HYPERTENSION
     Dates: start: 201401, end: 201605
  12. NITROGLYCERIN. [Concomitant]
     Active Substance: NITROGLYCERIN
     Indication: HYPERTENSION
     Dates: start: 201401, end: 201605
  13. PRILOSEC [Suspect]
     Active Substance: OMEPRAZOLE MAGNESIUM
     Indication: GASTROOESOPHAGEAL REFLUX DISEASE
     Route: 048
     Dates: start: 1998, end: 200012
  14. ACETAMINOPHEN. [Concomitant]
     Active Substance: ACETAMINOPHEN
  15. PROVIGIL [Concomitant]
     Active Substance: MODAFINIL
  16. TRAZODONE [Concomitant]
     Active Substance: TRAZODONE HYDROCHLORIDE
  17. CHLORBENZOXAMINE [Concomitant]
  18. METOLAZONE. [Concomitant]
     Active Substance: METOLAZONE
  19. AMITRIPTYLINE [Concomitant]
     Active Substance: AMITRIPTYLINE
  20. PHENYTOIN. [Concomitant]
     Active Substance: PHENYTOIN
  21. MODAFINIL. [Concomitant]
     Active Substance: MODAFINIL
  22. MODAFINIL. [Concomitant]
     Active Substance: MODAFINIL
  23. MODAFINIL. [Concomitant]
     Active Substance: MODAFINIL
  24. REGLAN [Concomitant]
     Active Substance: METOCLOPRAMIDE HYDROCHLORIDE
     Indication: HYPERTENSION
     Dates: start: 201401, end: 201605
  25. ZOCOR [Concomitant]
     Active Substance: SIMVASTATIN
     Indication: HYPERTENSION
     Dates: start: 201401, end: 201605
  26. METOPROLOL. [Concomitant]
     Active Substance: METOPROLOL
     Indication: HYPERTENSION
     Dates: start: 20090506, end: 20150305
  27. LEVAQUIN [Concomitant]
     Active Substance: LEVOFLOXACIN
  28. RELION [Concomitant]
  29. CLONAZEPAM. [Concomitant]
     Active Substance: CLONAZEPAM
  30. FERROUS SULFATE. [Concomitant]
     Active Substance: FERROUS SULFATE
  31. TORSEMIDE. [Concomitant]
     Active Substance: TORSEMIDE
  32. TELMISARTAN. [Concomitant]
     Active Substance: TELMISARTAN
  33. ISOSORBIDE. [Concomitant]
     Active Substance: ISOSORBIDE
  34. MODAFINIL. [Concomitant]
     Active Substance: MODAFINIL
  35. AVANDIA [Concomitant]
     Active Substance: ROSIGLITAZONE MALEATE
     Indication: HYPERTENSION
     Dates: start: 201401, end: 201605
  36. CALAN [Concomitant]
     Active Substance: VERAPAMIL HYDROCHLORIDE
     Indication: HYPERTENSION
     Dates: start: 201401, end: 201605
  37. LOTENSIN [Concomitant]
     Active Substance: BENAZEPRIL HYDROCHLORIDE
     Indication: HYPERTENSION
     Dates: start: 201401, end: 201605
  38. PREVACID [Suspect]
     Active Substance: LANSOPRAZOLE
     Indication: GASTROOESOPHAGEAL REFLUX DISEASE
     Route: 065
     Dates: start: 201102, end: 201104
  39. CLONIDINE. [Concomitant]
     Active Substance: CLONIDINE
     Indication: HYPERTENSION
     Dates: start: 201401, end: 201605
  40. ACTOS [Concomitant]
     Active Substance: PIOGLITAZONE HYDROCHLORIDE
     Indication: DIABETES MELLITUS
     Dates: start: 200808, end: 201204
  41. AZITHROMYCIN ANHYDROUS. [Concomitant]
     Active Substance: AZITHROMYCIN ANHYDROUS
  42. GABAPENTIN. [Concomitant]
     Active Substance: GABAPENTIN
  43. METOCLOPRAMIDE. [Concomitant]
     Active Substance: METOCLOPRAMIDE
  44. LISINOPRIL. [Concomitant]
     Active Substance: LISINOPRIL
  45. CRESTOR [Concomitant]
     Active Substance: ROSUVASTATIN CALCIUM
  46. SERTRALINE [Concomitant]
     Active Substance: SERTRALINE HYDROCHLORIDE
  47. OXYCODONE [Concomitant]
     Active Substance: OXYCODONE
  48. COMBIVENT [Concomitant]
     Active Substance: ALBUTEROL SULFATE\IPRATROPIUM BROMIDE
  49. LORAZEPAM. [Concomitant]
     Active Substance: LORAZEPAM
  50. NOVOLIN NOS [Concomitant]
     Active Substance: INSULIN HUMAN
  51. MODAFINIL. [Concomitant]
     Active Substance: MODAFINIL
  52. MODAFINIL. [Concomitant]
     Active Substance: MODAFINIL
  53. ZOLOFT [Concomitant]
     Active Substance: SERTRALINE HYDROCHLORIDE
  54. PRAVASTATIN. [Concomitant]
     Active Substance: PRAVASTATIN
     Indication: HYPERTENSION
     Dates: start: 201401, end: 201605
  55. BENADRYL [Concomitant]
     Active Substance: DIPHENHYDRAMINE HYDROCHLORIDE
     Indication: PRURITUS
     Dates: start: 2019
  56. ZANTAC [Concomitant]
     Active Substance: RANITIDINE HYDROCHLORIDE
     Dosage: 150
     Dates: start: 2002, end: 2007
  57. FUROSEMIDE. [Concomitant]
     Active Substance: FUROSEMIDE
  58. ALPRAZOLAM. [Concomitant]
     Active Substance: ALPRAZOLAM
  59. DOXAZOSIN [Concomitant]
     Active Substance: DOXAZOSIN MESYLATE
  60. MODAFINIL. [Concomitant]
     Active Substance: MODAFINIL
  61. MODAFINIL. [Concomitant]
     Active Substance: MODAFINIL
  62. LOPRESSOR [Concomitant]
     Active Substance: METOPROLOL TARTRATE
     Indication: HYPERTENSION
     Dates: start: 201401, end: 201605
  63. NAPROXEN. [Concomitant]
     Active Substance: NAPROXEN
     Indication: HYPERTENSION
     Dates: start: 201401, end: 201605
  64. VOLTAREN [Concomitant]
     Active Substance: DICLOFENAC SODIUM
     Indication: HYPERTENSION
     Dates: start: 201401, end: 201605
  65. PRILOSEC OTC [Suspect]
     Active Substance: OMEPRAZOLE MAGNESIUM
     Indication: GASTROOESOPHAGEAL REFLUX DISEASE
     Route: 048
     Dates: start: 20051003, end: 20070208
  66. TYLENOL [Concomitant]
     Active Substance: ACETAMINOPHEN
     Indication: HEADACHE
     Dates: start: 1997
  67. BENZONATATE. [Concomitant]
     Active Substance: BENZONATATE
  68. AVELOX [Concomitant]
     Active Substance: MOXIFLOXACIN HYDROCHLORIDE
  69. HUMULIN NOS [Concomitant]
     Active Substance: INSULIN HUMAN
  70. PIOGLITAZONE. [Concomitant]
     Active Substance: PIOGLITAZONE
  71. MELOXICAM. [Concomitant]
     Active Substance: MELOXICAM
  72. VERAPAMIL [Concomitant]
     Active Substance: VERAPAMIL HYDROCHLORIDE
  73. AMITRIPTYLINE [Concomitant]
     Active Substance: AMITRIPTYLINE
  74. PAROXETINE. [Concomitant]
     Active Substance: PAROXETINE
  75. MODAFINIL. [Concomitant]
     Active Substance: MODAFINIL
  76. NEXIUM [Suspect]
     Active Substance: ESOMEPRAZOLE MAGNESIUM
     Indication: GASTROOESOPHAGEAL REFLUX DISEASE
     Route: 048
     Dates: start: 200809
  77. PRILOSEC [Suspect]
     Active Substance: OMEPRAZOLE MAGNESIUM
     Indication: GASTROOESOPHAGEAL REFLUX DISEASE
     Dosage: GENERIC, MR
     Route: 065
     Dates: start: 20100420
  78. BAYER ASPIRIN [Concomitant]
     Active Substance: ASPIRIN
     Indication: MUSCLE RELAXANT THERAPY
     Dates: start: 1996
  79. METRONIDAZOLE. [Concomitant]
     Active Substance: METRONIDAZOLE
  80. CLONIDINE. [Concomitant]
     Active Substance: CLONIDINE
  81. MODAFINIL. [Concomitant]
     Active Substance: MODAFINIL
  82. MODAFINIL. [Concomitant]
     Active Substance: MODAFINIL
  83. MODAFINIL. [Concomitant]
     Active Substance: MODAFINIL
  84. DULCOLAX NOS [Concomitant]
     Active Substance: BISACODYL OR DOCUSATE SODIUM
     Indication: HYPERTENSION
     Dates: start: 201401, end: 201605
  85. IMDUR [Concomitant]
     Active Substance: ISOSORBIDE MONONITRATE
     Indication: HYPERTENSION
     Dates: start: 201401, end: 201605
  86. NEXIUM [Suspect]
     Active Substance: ESOMEPRAZOLE MAGNESIUM
     Indication: GASTROOESOPHAGEAL REFLUX DISEASE
     Dosage: MR
     Route: 048
     Dates: start: 20080911
  87. METOCLOPRAMIDE. [Concomitant]
     Active Substance: METOCLOPRAMIDE
     Indication: NAUSEA
     Dates: start: 20090106, end: 20150305
  88. HYDROCHLOROTHIAZIDE. [Concomitant]
     Active Substance: HYDROCHLOROTHIAZIDE
  89. CIPROFLOXACIN. [Concomitant]
     Active Substance: CIPROFLOXACIN
  90. PROMETHAZINE [Concomitant]
     Active Substance: PROMETHAZINE HYDROCHLORIDE
  91. AGGRENOX [Concomitant]
     Active Substance: ASPIRIN\DIPYRIDAMOLE
  92. ZOLPIDEM [Concomitant]
     Active Substance: ZOLPIDEM TARTRATE
  93. ASMANEX [Concomitant]
     Active Substance: MOMETASONE FUROATE
  94. TROPACINE. [Concomitant]
     Active Substance: TROPACINE
     Indication: HYPERTENSION
     Dates: start: 201401, end: 201605

REACTIONS (7)
  - Renal failure [Unknown]
  - Acute kidney injury [Not Recovered/Not Resolved]
  - Chronic kidney disease [Not Recovered/Not Resolved]
  - End stage renal disease [Not Recovered/Not Resolved]
  - Nephrogenic anaemia [Unknown]
  - Gastrooesophageal reflux disease [Not Recovered/Not Resolved]
  - Chronic kidney disease-mineral and bone disorder [Unknown]

NARRATIVE: CASE EVENT DATE: 20140115
